FAERS Safety Report 8731701 (Version 4)
Quarter: 2012Q4

REPORT INFORMATION
  Report Type: 
  Country: JP (occurrence: JP)
  Receive Date: 20120820
  Receipt Date: 20120911
  Transmission Date: 20130627
  Serious: Yes (Hospitalization, Other)
  Sender: FDA-Public Use
  Company Number: JP-PFIZER INC-2012198940

PATIENT
  Age: 77 Year
  Sex: Male

DRUGS (6)
  1. UNASYN [Suspect]
     Dosage: 1.5 g, 3x/day
     Route: 042
     Dates: start: 20120704, end: 201207
  2. UNASYN [Suspect]
     Dosage: 1.5 g, 4x/day
     Dates: start: 201207, end: 20120722
  3. DALACIN [Suspect]
     Dosage: UNK
     Route: 042
     Dates: start: 20120801
  4. MODACIN [Suspect]
     Dosage: UNK
     Route: 042
  5. FIRSTCIN [Concomitant]
     Dosage: UNK
     Route: 042
     Dates: start: 20120801, end: 20120815
  6. MEROPENEM [Concomitant]
     Dosage: UNK
     Route: 042
     Dates: start: 20120801, end: 20120815

REACTIONS (1)
  - Eosinophilic pneumonia [Recovering/Resolving]
